FAERS Safety Report 13063599 (Version 1)
Quarter: 2016Q4

REPORT INFORMATION
  Report Type: Spontaneous
  Country: DK (occurrence: DK)
  Receive Date: 20161227
  Receipt Date: 20161227
  Transmission Date: 20170207
  Serious: Yes (Life-Threatening, Hospitalization)
  Sender: FDA-Public Use
  Company Number: PHHY2015DK056691

PATIENT
  Age: 44 Year
  Sex: Female

DRUGS (7)
  1. ATACAND [Concomitant]
     Active Substance: CANDESARTAN CILEXETIL
     Indication: MIGRAINE PROPHYLAXIS
     Dosage: UNK
     Route: 048
  2. MIGARD [Concomitant]
     Active Substance: FROVATRIPTAN SUCCINATE
     Indication: PRODUCT USED FOR UNKNOWN INDICATION
     Dosage: UNK, TAKEN WHEN NEEDED
     Route: 048
     Dates: start: 20150312
  3. MIGARD [Concomitant]
     Active Substance: FROVATRIPTAN SUCCINATE
     Dosage: TAGES VED BEHOV.
     Route: 048
     Dates: start: 20150312
  4. TOPIRAMATE HEXAL [Suspect]
     Active Substance: TOPIRAMATE
     Indication: MIGRAINE WITH AURA
     Dosage: 25 MG, QD
     Route: 048
  5. CHLORZOXAZONE. [Concomitant]
     Active Substance: CHLORZOXAZONE
     Indication: MIGRAINE
     Dosage: TAKEN WHEN NEEDED
     Route: 048
     Dates: start: 20150311
  6. TOPIRAMATE HEXAL [Suspect]
     Active Substance: TOPIRAMATE
     Dosage: 150 MG, QD
     Route: 048
     Dates: start: 20150312, end: 20150428
  7. EMPERAL [Concomitant]
     Active Substance: METOCLOPRAMIDE HYDROCHLORIDE
     Indication: MIGRAINE
     Dosage: UNK, TAKEN WHEN NEEDED
     Route: 048
     Dates: start: 20150311

REACTIONS (12)
  - Dysgeusia [Not Recovered/Not Resolved]
  - Depressive symptom [Recovered/Resolved]
  - Balance disorder [Recovered/Resolved]
  - Somnolence [Recovered/Resolved]
  - Nausea [Recovered/Resolved]
  - Disturbance in attention [Recovered/Resolved]
  - Tinnitus [Recovered/Resolved]
  - Suicidal ideation [Recovered/Resolved]
  - Memory impairment [Recovering/Resolving]
  - Derealisation [Recovered/Resolved]
  - Hypoacusis [Recovered/Resolved]
  - Hyposmia [Not Recovered/Not Resolved]

NARRATIVE: CASE EVENT DATE: 20150326
